FAERS Safety Report 6383825-5 (Version None)
Quarter: 2009Q3

REPORT INFORMATION
  Report Type: 
  Country: None (occurrence: None)
  Receive Date: 20090929
  Receipt Date: 20090929
  Transmission Date: 20100115
  Serious: No
  Sender: FDA-Public Use
  Company Number: None

PATIENT
  Age: 74 Year
  Sex: Female

DRUGS (10)
  1. ALTEPLASE [Suspect]
     Indication: DEEP VEIN THROMBOSIS
     Dosage: 0.8 MG PER HOUR IV DRIP
     Route: 041
     Dates: start: 20090116, end: 20090117
  2. HEPARIN [Suspect]
     Indication: THROMBOSIS
     Dosage: 500 UNITS PER HOUR IV DRIP
     Route: 041
     Dates: start: 20090116, end: 20090117
  3. FAMOTIDINE [Concomitant]
  4. LOTREL [Concomitant]
  5. HYDROCHLOROTHIAZIDE [Concomitant]
  6. LOVASTATIN [Concomitant]
  7. CLOPIDOGREL [Concomitant]
  8. LEVOTHYROXINE [Concomitant]
  9. ALLOPURINOL [Concomitant]
  10. CLONIDINE [Concomitant]

REACTIONS (4)
  - COMA [None]
  - HAEMORRHAGE INTRACRANIAL [None]
  - MENTAL STATUS CHANGES [None]
  - NO THERAPEUTIC RESPONSE [None]
